FAERS Safety Report 14071329 (Version 1)
Quarter: 2017Q4

REPORT INFORMATION
  Report Type: Spontaneous
  Country: US (occurrence: US)
  Receive Date: 20171011
  Receipt Date: 20171011
  Transmission Date: 20180321
  Serious: Yes (Other)
  Sender: FDA-Public Use
  Company Number: US-BION-006439

PATIENT
  Age: 28 Year
  Sex: Female

DRUGS (1)
  1. PROGESTERONE. [Suspect]
     Active Substance: PROGESTERONE
     Indication: PROGESTERONE DECREASED
     Dates: start: 20170528, end: 20170603

REACTIONS (4)
  - Drug dose omission [Not Recovered/Not Resolved]
  - Menstruation irregular [Unknown]
  - Metrorrhagia [Recovered/Resolved]
  - Abdominal pain [Recovered/Resolved]

NARRATIVE: CASE EVENT DATE: 20170601
